FAERS Safety Report 15644300 (Version 1)
Quarter: 2018Q4

REPORT INFORMATION
  Report Type: Spontaneous
  Country: US (occurrence: US)
  Receive Date: 20181121
  Receipt Date: 20181121
  Transmission Date: 20190205
  Serious: No
  Sender: FDA-Public Use
  Company Number: None

PATIENT
  Age: 72 Year
  Sex: Female

DRUGS (3)
  1. NEXIUM [Concomitant]
     Active Substance: ESOMEPRAZOLE MAGNESIUM
     Dates: start: 20171003
  2. ZESTRIL [Concomitant]
     Active Substance: LISINOPRIL
     Dates: start: 20171218
  3. TRIAMPTERENE HCTZ [Suspect]
     Active Substance: HYDROCHLOROTHIAZIDE\TRIAMTERENE
     Route: 048
     Dates: start: 20180823, end: 20181112

REACTIONS (3)
  - Rash [None]
  - Vision blurred [None]
  - Abdominal discomfort [None]

NARRATIVE: CASE EVENT DATE: 20180823
